FAERS Safety Report 8496158-8 (Version None)
Quarter: 2012Q3

REPORT INFORMATION
  Report Type: 
  Country: None (occurrence: None)
  Receive Date: 20120709
  Receipt Date: 20120628
  Transmission Date: 20120928
  Serious: Yes (Other)
  Sender: FDA-Public Use
  Company Number: US-PERRIGO-12US005660

PATIENT
  Sex: Female
  Weight: 64.853 kg

DRUGS (1)
  1. NICOTINE POLACRILEX [Suspect]
     Indication: SMOKING CESSATION THERAPY
     Dosage: 2 MG, SINGLE
     Route: 002
     Dates: start: 20120627, end: 20120627

REACTIONS (9)
  - HYPERSENSITIVITY [None]
  - NAUSEA [None]
  - PARAESTHESIA [None]
  - CHEST PAIN [None]
  - MYALGIA [None]
  - FLUSHING [None]
  - SENSATION OF HEAVINESS [None]
  - DIZZINESS [None]
  - HYPOAESTHESIA [None]
